FAERS Safety Report 7216146-9 (Version None)
Quarter: 2011Q1

REPORT INFORMATION
  Report Type: 
  Country: None (occurrence: None)
  Receive Date: 20110105
  Receipt Date: 20110105
  Transmission Date: 20110831
  Serious: Yes (Hospitalization)
  Sender: FDA-Public Use
  Company Number: None

PATIENT
  Age: 57 Year
  Sex: Female
  Weight: 44.7 kg

DRUGS (2)
  1. CETUXIMAB UNKNOWN UNKNOWN [Suspect]
     Dosage: 360 MG WEEKLY IV DRIP
     Route: 041
     Dates: start: 20101214, end: 20101220
  2. CISPLATIN [Suspect]
     Indication: HEAD AND NECK CANCER
     Dosage: 43 MG WEEKLY IV DRIP
     Route: 041
     Dates: start: 20101214, end: 20101220

REACTIONS (1)
  - HOSPITALISATION [None]
